FAERS Safety Report 10177067 (Version 2)
Quarter: 2014Q2

REPORT INFORMATION
  Report Type: Spontaneous
  Country: JP (occurrence: JP)
  Receive Date: 20140516
  Receipt Date: 20140527
  Transmission Date: 20141212
  Serious: Yes (Other)
  Sender: FDA-Public Use
  Company Number: JP-ASTRAZENECA-2014SE31870

PATIENT
  Age: 54 Year
  Sex: Male
  Weight: 70 kg

DRUGS (8)
  1. DIPRIVAN [Suspect]
     Indication: SEDATIVE THERAPY
     Dosage: 0.5-1.0 MCG/ML
     Route: 042
  2. ANAPEINE [Suspect]
     Indication: NERVE BLOCK
     Route: 053
  3. ANAPEINE [Suspect]
     Indication: NERVE BLOCK
     Route: 053
  4. DEXMEDETOMIDINE HYDROCHLORIDE [Suspect]
     Indication: SEDATIVE THERAPY
     Dosage: 1 MCG/KG/H, 0.4-0.5 MCG/KG/H, AND 0.2 MCG/KG/H
     Route: 042
  5. DEXMEDETOMIDINE HYDROCHLORIDE [Suspect]
     Indication: SEDATIVE THERAPY
     Dosage: 0.4-0.5 MCG/KG/H
     Route: 042
  6. DEXMEDETOMIDINE HYDROCHLORIDE [Suspect]
     Indication: SEDATIVE THERAPY
     Dosage: 0.2 MCG/KG/H
     Route: 042
  7. FENTANYL [Suspect]
     Route: 042
  8. OXYGEN [Suspect]
     Dosage: 3 L/MIN
     Route: 055

REACTIONS (1)
  - Ventricular tachycardia [Recovering/Resolving]
